FAERS Safety Report 7620890-9 (Version None)
Quarter: 2011Q3

REPORT INFORMATION
  Report Type: 
  Country: None (occurrence: None)
  Receive Date: 20110719
  Receipt Date: 20110712
  Transmission Date: 20111222
  Serious: Yes (Congenital Anomaly, Other)
  Sender: FDA-Public Use
  Company Number: US-PFIZER INC-2007095357

PATIENT
  Sex: Male
  Weight: 3 kg

DRUGS (6)
  1. ZOLOFT [Suspect]
     Indication: POSTPARTUM DEPRESSION
     Dosage: 50 MG, 1X/DAY
     Route: 064
  2. ZOLOFT [Suspect]
     Indication: DEPRESSION
  3. PRENATAL VITAMINS [Concomitant]
  4. PHENERGAN EXPECTORANT W/ CODEINE [Concomitant]
  5. PREDNISONE [Concomitant]
  6. ALBUTEROL SULFATE AUTOHALER [Concomitant]

REACTIONS (22)
  - MATERNAL EXPOSURE DURING PREGNANCY [None]
  - DEVELOPMENTAL DELAY [None]
  - HYPOTHALAMO-PITUITARY DISORDER [None]
  - PNEUMONIA [None]
  - RESPIRATORY DISTRESS [None]
  - CARDIAC SEPTAL DEFECT [None]
  - CONGENITAL HEART VALVE DISORDER [None]
  - PNEUMOTHORAX [None]
  - BONE DISORDER [None]
  - ATELECTASIS [None]
  - JUVENILE ARTHRITIS [None]
  - BLOOD PRESSURE SYSTOLIC DECREASED [None]
  - WALKING DISABILITY [None]
  - AORTIC VALVE STENOSIS [None]
  - PERSISTENT FOETAL CIRCULATION [None]
  - DYSPHAGIA [None]
  - LETHARGY [None]
  - FEEDING DISORDER OF INFANCY OR EARLY CHILDHOOD [None]
  - ECZEMA [None]
  - EAR INFECTION [None]
  - PATENT DUCTUS ARTERIOSUS [None]
  - HYPOXIA [None]
